FAERS Safety Report 19974114 (Version 1)
Quarter: 2021Q4

REPORT INFORMATION
  Report Type: Spontaneous
  Country: US (occurrence: US)
  Receive Date: 20211020
  Receipt Date: 20211020
  Transmission Date: 20220303
  Serious: Yes (Other)
  Sender: FDA-Public Use
  Company Number: None

PATIENT
  Age: 31 Year
  Sex: Male
  Weight: 74.25 kg

DRUGS (1)
  1. PRIVIGEN [Suspect]
     Active Substance: HUMAN IMMUNOGLOBULIN G
     Indication: Immune thrombocytopenia
     Dosage: ?          OTHER FREQUENCY:TAPER DOWN;
     Route: 042
     Dates: start: 20210924, end: 20210924

REACTIONS (3)
  - Urticaria [None]
  - Product quality issue [None]
  - Hypersensitivity [None]

NARRATIVE: CASE EVENT DATE: 20210924
